FAERS Safety Report 15717561 (Version 1)
Quarter: 2018Q4

REPORT INFORMATION
  Report Type: Spontaneous
  Country: US (occurrence: US)
  Receive Date: 20181130
  Receipt Date: 20181130
  Transmission Date: 20190205
  Serious: Yes (Disabling)
  Sender: FDA-Public Use
  Company Number: None

PATIENT
  Age: 27 Year
  Sex: Female
  Weight: 63 kg

DRUGS (4)
  1. KLARIX [Suspect]
     Active Substance: CLARITHROMYCIN
     Indication: INFLUENZA
     Route: 048
     Dates: start: 20181129, end: 20181130
  2. CLARITHROMYCIN. [Suspect]
     Active Substance: CLARITHROMYCIN
     Indication: OROPHARYNGEAL PAIN
     Route: 048
     Dates: start: 20181129, end: 20181130
  3. CLARITHROMYCIN. [Suspect]
     Active Substance: CLARITHROMYCIN
     Indication: INFLUENZA
     Route: 048
     Dates: start: 20181129, end: 20181130
  4. KLARIX [Suspect]
     Active Substance: CLARITHROMYCIN
     Indication: OROPHARYNGEAL PAIN
     Route: 048
     Dates: start: 20181129, end: 20181130

REACTIONS (9)
  - Nasal congestion [None]
  - Throat irritation [None]
  - Headache [None]
  - Pyrexia [None]
  - Malaise [None]
  - Productive cough [None]
  - Sneezing [None]
  - Cough [None]
  - Dysgeusia [None]

NARRATIVE: CASE EVENT DATE: 20181130
